FAERS Safety Report 23340129 (Version 6)
Quarter: 2025Q3

REPORT INFORMATION
  Report Type: Report from Study
  Country: US (occurrence: US)
  Receive Date: 20231227
  Receipt Date: 20250803
  Transmission Date: 20251021
  Serious: Yes (Other)
  Sender: ABBVIE
  Company Number: US-ABBVIE-5556492

PATIENT
  Age: 53 Year
  Sex: Female

DRUGS (3)
  1. RINVOQ [Suspect]
     Active Substance: UPADACITINIB
     Indication: Rheumatoid arthritis
     Dosage: 15 MILLIGRAM
     Route: 048
     Dates: start: 20201230, end: 202506
  2. RINVOQ [Suspect]
     Active Substance: UPADACITINIB
     Indication: Rheumatoid arthritis
     Route: 048
  3. LYRICA [Suspect]
     Active Substance: PREGABALIN
     Indication: Neuropathy peripheral
     Route: 065

REACTIONS (18)
  - Peroneal nerve palsy [Recovering/Resolving]
  - Osteoarthritis [Not Recovered/Not Resolved]
  - Arthropathy [Not Recovered/Not Resolved]
  - Brain fog [Unknown]
  - Migraine [Recovered/Resolved]
  - Tendon rupture [Not Recovered/Not Resolved]
  - Neuralgia [Not Recovered/Not Resolved]
  - Post procedural complication [Unknown]
  - Fall [Unknown]
  - Aphasia [Unknown]
  - Limb asymmetry [Not Recovered/Not Resolved]
  - Pelvic organ prolapse [Not Recovered/Not Resolved]
  - Skin disorder [Recovered/Resolved]
  - Immunosuppression [Unknown]
  - Surgical failure [Recovering/Resolving]
  - Pyrexia [Recovering/Resolving]
  - Cough [Recovering/Resolving]
  - Spinal disorder [Not Recovered/Not Resolved]

NARRATIVE: CASE EVENT DATE: 20230101
